FAERS Safety Report 7289931-5 (Version None)
Quarter: 2011Q1

REPORT INFORMATION
  Report Type: 
  Country: None (occurrence: None)
  Receive Date: 20110214
  Receipt Date: 20110201
  Transmission Date: 20110831
  Serious: Yes (Hospitalization)
  Sender: FDA-Public Use
  Company Number: US-JNJFOC-20110201159

PATIENT
  Age: 24 Year
  Sex: Female

DRUGS (1)
  1. INFLIXIMAB, RECOMBINANT [Suspect]
     Indication: CROHN'S DISEASE
     Dosage: 1ST INFUSION
     Route: 042

REACTIONS (6)
  - HEADACHE [None]
  - HYDROCEPHALUS [None]
  - SYRINGOMYELIA [None]
  - NAUSEA [None]
  - PYREXIA [None]
  - INFUSION RELATED REACTION [None]
